FAERS Safety Report 9417392 (Version 3)
Quarter: 2013Q3

REPORT INFORMATION
  Report Type: Spontaneous
  Country: US (occurrence: US)
  Receive Date: 20130724
  Receipt Date: 20130829
  Transmission Date: 20140515
  Serious: Yes (Other)
  Sender: FDA-Public Use
  Company Number: US-PFIZER INC-2013215405

PATIENT
  Age: 69 Year
  Sex: Female
  Weight: 65.76 kg

DRUGS (4)
  1. LYRICA [Suspect]
     Indication: NEURALGIA
     Dosage: UNK
     Route: 048
  2. NEURONTIN [Concomitant]
     Dosage: UNK
  3. CALAN - SLOW RELEASE [Concomitant]
     Indication: HYPERTENSION
     Dosage: UNK
  4. CELEBREX [Concomitant]
     Dosage: UNK

REACTIONS (4)
  - Suicidal ideation [Recovered/Resolved]
  - Central nervous system lesion [Unknown]
  - Depression [Recovered/Resolved]
  - Drug ineffective [Unknown]
